FAERS Safety Report 6668627-4 (Version None)
Quarter: 2010Q2

REPORT INFORMATION
  Report Type: 
  Country: None (occurrence: None)
  Receive Date: 20100406
  Receipt Date: 20100401
  Transmission Date: 20101027
  Serious: Yes (Death)
  Sender: FDA-Public Use
  Company Number: PHEH2009US09304

PATIENT
  Sex: Male

DRUGS (3)
  1. EXJADE [Suspect]
     Dosage: 625 MG/DAY
     Route: 048
     Dates: start: 20081217
  2. EXJADE [Suspect]
     Dosage: 1000 MG/DAY
     Route: 048
  3. EXJADE [Suspect]
     Dosage: 1000 MG, QD
     Route: 048
     Dates: start: 20090727, end: 20100227

REACTIONS (3)
  - DIARRHOEA [None]
  - DRUG INTOLERANCE [None]
  - LEUKAEMIA [None]
